FAERS Safety Report 10184827 (Version 1)
Quarter: 2014Q2

REPORT INFORMATION
  Report Type: Spontaneous
  Country: IT (occurrence: None)
  Receive Date: 20140519
  Receipt Date: 20140519
  Transmission Date: 20141212
  Serious: Yes (Hospitalization)
  Sender: FDA-Public Use
  Company Number: AUR-APL-2014-05672

PATIENT
  Age: 72 Year
  Sex: Male

DRUGS (4)
  1. ATENOLOL (ATENOLOL) [Suspect]
     Indication: HYPERTENSION
     Dosage: 100 MG, 1 D
     Route: 048
     Dates: start: 20120101, end: 20140430
  2. COUMADIN (COUMARIN) [Concomitant]
  3. FLECAINIDE (FLECAINIDE) [Concomitant]
  4. AMLODIPINE (AMLODIPINE) [Concomitant]

REACTIONS (3)
  - Bradycardia [None]
  - Presyncope [None]
  - Vertigo [None]
